FAERS Safety Report 21472015 (Version 1)
Quarter: 2022Q4

REPORT INFORMATION
  Report Type: Other
  Country: JP (occurrence: JP)
  Receive Date: 20221018
  Receipt Date: 20221018
  Transmission Date: 20230112
  Serious: Yes (Other)
  Sender: FDA-Public Use
  Company Number: JP-CHUGAI-2022040288

PATIENT
  Age: 68 Year
  Sex: Male

DRUGS (3)
  1. CELLCEPT [Suspect]
     Active Substance: MYCOPHENOLATE MOFETIL
     Indication: Immune-mediated cholangitis
     Dosage: UNK
     Route: 048
  2. PREDNISOLONE [Concomitant]
     Active Substance: PREDNISOLONE
     Indication: Immune-mediated cholangitis
     Dosage: UNK
     Route: 065
  3. URSODIOL [Concomitant]
     Active Substance: URSODIOL
     Indication: Immune-mediated cholangitis
     Dosage: UNK
     Route: 065

REACTIONS (5)
  - Pancreatic fistula [Recovering/Resolving]
  - Splenic infarction [Unknown]
  - Pancreatitis necrotising [Recovering/Resolving]
  - Splenic vein occlusion [Unknown]
  - Off label use [Unknown]
